FAERS Safety Report 20226333 (Version 2)
Quarter: 2021Q4

REPORT INFORMATION
  Report Type: Other
  Country: US (occurrence: None)
  Receive Date: 20211224
  Receipt Date: 20211228
  Transmission Date: 20220303
  Serious: Yes (Other)
  Sender: FDA-Public Use
  Company Number: US-ROCHE-2981423

PATIENT
  Sex: Male

DRUGS (3)
  1. AVASTIN [Suspect]
     Active Substance: BEVACIZUMAB
     Indication: Lung neoplasm malignant
     Dosage: INFUSE 1736 MG INTRAVENOUSLY EVERY 21 DAY(S)
     Route: 042
  2. AVASTIN [Suspect]
     Active Substance: BEVACIZUMAB
     Indication: Metastases to central nervous system
     Dosage: INFUSE 1736 MG INTRAVENOUSLY EVERY 21 DAY(S)
     Route: 042
  3. TECENTRIQ [Suspect]
     Active Substance: ATEZOLIZUMAB
     Indication: Product used for unknown indication
     Dosage: INFUSE 1680 MG INTRAVENOUSLY EVERY 4 WEEK(S)
     Route: 042

REACTIONS (1)
  - Liver injury [Unknown]
